FAERS Safety Report 5079601-6 (Version None)
Quarter: 2006Q3

REPORT INFORMATION
  Report Type: 
  Country: None (occurrence: None)
  Receive Date: 20060814
  Receipt Date: 20060801
  Transmission Date: 20061208
  Serious: Yes (Other)
  Sender: FDA-Public Use
  Company Number: JP-NOVOPROD-255951

PATIENT
  Age: 70 Year
  Sex: Male
  Weight: 62 kg

DRUGS (4)
  1. NOVOSEVEN [Suspect]
     Indication: HAEMOPHILIA A WITH ANTI FACTOR VIII
     Dosage: 12 MG, SINGLE
     Route: 042
     Dates: start: 20051221, end: 20051221
  2. DICLOPHENAC [Concomitant]
     Indication: ARTHRALGIA
     Dosage: 37.5 MG, QD
     Route: 048
     Dates: start: 20050122
  3. LIPITOR [Concomitant]
     Indication: HYPERLIPIDAEMIA
     Dosage: 10 MG, QD
     Route: 048
     Dates: start: 20050122
  4. NORVASC                            /00972402/ [Concomitant]
     Indication: HYPERTENSION
     Dosage: 2.5 MG, QD
     Route: 048

REACTIONS (1)
  - PANCREATITIS [None]
